FAERS Safety Report 9617759 (Version 2)
Quarter: 2013Q4

REPORT INFORMATION
  Report Type: Spontaneous
  Country: US (occurrence: US)
  Receive Date: 20131011
  Receipt Date: 20131024
  Transmission Date: 20140711
  Serious: Yes (Hospitalization)
  Sender: FDA-Public Use
  Company Number: US-ELI_LILLY_AND_COMPANY-US201310001196

PATIENT
  Sex: Female
  Weight: 3.63 kg

DRUGS (2)
  1. DULOXETINE HYDROCHLORIDE [Suspect]
     Route: 064
  2. DULOXETINE HYDROCHLORIDE [Suspect]
     Route: 064

REACTIONS (10)
  - Hyperbilirubinaemia neonatal [Recovered/Resolved]
  - Tachypnoea [Recovered/Resolved]
  - Tremor neonatal [Recovered/Resolved]
  - Poor sucking reflex [Recovered/Resolved]
  - Hyperreflexia [Recovered/Resolved]
  - Hypertonia [Recovered/Resolved]
  - Irritability [Recovered/Resolved]
  - Weight decreased [Recovered/Resolved]
  - Drug withdrawal syndrome [Recovered/Resolved]
  - Foetal exposure during pregnancy [Recovered/Resolved]
